FAERS Safety Report 13896735 (Version 1)
Quarter: 2017Q3

REPORT INFORMATION
  Report Type: Spontaneous
  Country: US (occurrence: US)
  Receive Date: 20170823
  Receipt Date: 20170823
  Transmission Date: 20171127
  Serious: Yes (Other)
  Sender: FDA-Public Use
  Company Number: US-LUNDBECK-DKLU2035934

PATIENT
  Sex: Female

DRUGS (2)
  1. NORTHERA [Suspect]
     Active Substance: DROXIDOPA
     Indication: PRODUCT USED FOR UNKNOWN INDICATION
     Dosage: SCHEDULE A/TITRATION COMPLETE
     Route: 048
     Dates: start: 20170724
  2. NORTHERA [Suspect]
     Active Substance: DROXIDOPA
     Dosage: MAINTENANCE DOSE
     Route: 048

REACTIONS (2)
  - Orthostatic hypotension [Not Recovered/Not Resolved]
  - Loss of consciousness [Unknown]
